FAERS Safety Report 24745561 (Version 1)
Quarter: 2024Q4

REPORT INFORMATION
  Report Type: Spontaneous
  Country: US (occurrence: US)
  Receive Date: 20241218
  Receipt Date: 20241218
  Transmission Date: 20250114
  Serious: No
  Sender: AMGEN
  Company Number: US-AMGEN-USASP2024246483

PATIENT
  Age: 69 Year
  Sex: Female

DRUGS (3)
  1. KYPROLIS [Suspect]
     Active Substance: CARFILZOMIB
     Indication: Plasma cell myeloma
     Dosage: 110 MILLIGRAM (60MG X1VIAL )
     Route: 065
     Dates: start: 202409
  2. KYPROLIS [Suspect]
     Active Substance: CARFILZOMIB
     Dosage: 110 MILLIGRAM (30MG X1 VIAL)
     Route: 065
  3. KYPROLIS [Suspect]
     Active Substance: CARFILZOMIB
     Dosage: 110 MILLIGRAM (10MG X2 VIAL)
     Route: 065

REACTIONS (1)
  - Pyrexia [Unknown]

NARRATIVE: CASE EVENT DATE: 20241210
